FAERS Safety Report 9098451 (Version 1)
Quarter: 2013Q1

REPORT INFORMATION
  Report Type: Spontaneous
  Country: CA (occurrence: CA)
  Receive Date: 20130213
  Receipt Date: 20130213
  Transmission Date: 20140127
  Serious: Yes (Death)
  Sender: FDA-Public Use
  Company Number: PHHY2013CA012759

PATIENT
  Sex: 0

DRUGS (17)
  1. GLEEVEC [Suspect]
     Dosage: 400 MG, QD
     Route: 048
  2. METHOTREXATE [Suspect]
     Dosage: 4000 MG/M2, UNK
     Route: 042
  3. METHOTREXATE [Suspect]
     Dosage: 30 MG/M2, UNK
     Route: 030
  4. METHOTREXATE [Suspect]
     Dosage: 30 MG/M2, UNK
     Route: 042
  5. PREDNISONE [Suspect]
     Dosage: 10 MG, 4 EVERY 1 DAY
     Route: 048
  6. MERCAPTOPURINE [Suspect]
     Dosage: 50 MG/M2, UNK
     Route: 048
  7. ASPARAGINASE [Suspect]
     Route: 030
  8. DOXORUBEN [Suspect]
     Dosage: 30 MG/M2, UNK
     Route: 042
  9. LEUCOVORIN [Suspect]
  10. RADIATION THERAPY [Suspect]
  11. VINCRISTINE SULFATE [Suspect]
     Dosage: 2 MG, UNK
     Route: 042
  12. ALENDRONATE [Concomitant]
  13. BACTRIM [Concomitant]
  14. CALCIUM + VITAMIN D [Concomitant]
  15. FLUCONAZOLE [Concomitant]
  16. PENTAMIDINE ISETHIONATE [Concomitant]
  17. RISEDRONATE SODIUM [Concomitant]

REACTIONS (1)
  - Meningitis pneumococcal [Fatal]
